FAERS Safety Report 7811973-9 (Version None)
Quarter: 2011Q4

REPORT INFORMATION
  Report Type: 
  Country: None (occurrence: None)
  Receive Date: 20111013
  Receipt Date: 20111012
  Transmission Date: 20120403
  Serious: Yes (Death)
  Sender: FDA-Public Use
  Company Number: PHHY2010NL87122

PATIENT
  Sex: Female

DRUGS (2)
  1. SANDOSTATIN LAR [Suspect]
     Indication: GASTROINTESTINAL DISORDER
     Dosage: 20 MG,ONCE PER 4 WEEKS
     Dates: start: 20051116
  2. SANDOSTATIN LAR [Suspect]
     Dosage: 20 MG,ONCE PER 4 WEEKS
     Dates: start: 20100622, end: 20100622

REACTIONS (1)
  - DEATH [None]
